FAERS Safety Report 18915713 (Version 5)
Quarter: 2021Q3

REPORT INFORMATION
  Report Type: Spontaneous
  Country: US (occurrence: US)
  Receive Date: 20210219
  Receipt Date: 20210802
  Transmission Date: 20211014
  Serious: Yes (Other)
  Sender: FDA-Public Use
  Company Number: US-VIIV HEALTHCARE LIMITED-US2021AMR047498

PATIENT
  Sex: Female

DRUGS (3)
  1. CABENUVA [Suspect]
     Active Substance: CABOTEGRAVIR\RILPIVIRINE
  2. CABENUVA [Suspect]
     Active Substance: CABOTEGRAVIR\RILPIVIRINE
  3. CABENUVA [Suspect]
     Active Substance: CABOTEGRAVIR\RILPIVIRINE
     Indication: HIV INFECTION
     Dosage: UNK
     Dates: start: 201610

REACTIONS (12)
  - Illness [Not Recovered/Not Resolved]
  - Contusion [Not Recovered/Not Resolved]
  - Myalgia [Unknown]
  - Gait inability [Unknown]
  - Injection site pain [Recovering/Resolving]
  - Mass [Recovering/Resolving]
  - Loss of personal independence in daily activities [Unknown]
  - Pain [Recovered/Resolved]
  - Back pain [Not Recovered/Not Resolved]
  - Diabetes mellitus [Unknown]
  - COVID-19 [Not Recovered/Not Resolved]
  - Blood potassium decreased [Not Recovered/Not Resolved]
